FAERS Safety Report 4746749-2 (Version None)
Quarter: 2005Q3

REPORT INFORMATION
  Report Type: 
  Country: None (occurrence: None)
  Receive Date: 20050815
  Receipt Date: 20050801
  Transmission Date: 20060218
  Serious: Yes (Hospitalization)
  Sender: FDA-Public Use
  Company Number: AU_050808767

PATIENT
  Age: 57 Year
  Sex: Male
  Weight: 110 kg

DRUGS (2)
  1. XIGRIS [Suspect]
     Indication: INTESTINAL PERFORATION
     Dosage: 24 UG OTHER
     Dates: start: 20050729
  2. XIGRIS [Suspect]
     Indication: SEPSIS
     Dosage: 24 UG OTHER
     Dates: start: 20050729

REACTIONS (3)
  - CARDIAC FAILURE [None]
  - MULTI-ORGAN FAILURE [None]
  - RENAL FAILURE [None]
